FAERS Safety Report 10018149 (Version 1)
Quarter: 2014Q1

REPORT INFORMATION
  Report Type: Spontaneous
  Country: US (occurrence: None)
  Receive Date: 20140312
  Receipt Date: 20140312
  Transmission Date: 20141002
  Serious: Yes (Death)
  Sender: FDA-Public Use
  Company Number: UTC-045387

PATIENT
  Age: 74 Year
  Sex: Female

DRUGS (11)
  1. TYVASO [Suspect]
     Indication: PULMONARY ARTERIAL HYPERTENSION
     Dosage: 54 MCG, 4 IN 1 D
     Route: 055
     Dates: start: 20120302, end: 20140224
  2. DOXAZOSIN [Concomitant]
  3. LASIX [Concomitant]
  4. COUMADIN [Concomitant]
  5. TRAMADOL HCL [Concomitant]
  6. KLOR-CON [Concomitant]
  7. LISINOPRIL [Concomitant]
  8. METOPROLOL SUCCIANTE ER [Concomitant]
  9. GLIPIZIDE [Concomitant]
  10. METFORMIN HCL [Concomitant]
  11. FUROSEMIDE [Concomitant]

REACTIONS (1)
  - Death [None]
